FAERS Safety Report 7607080-0 (Version None)
Quarter: 2011Q3

REPORT INFORMATION
  Report Type: 
  Country: None (occurrence: None)
  Receive Date: 20110713
  Receipt Date: 20110705
  Transmission Date: 20111222
  Serious: Yes (Hospitalization)
  Sender: FDA-Public Use
  Company Number: GR-PFIZER INC-2011151289

PATIENT

DRUGS (5)
  1. CLARITHROMYCIN [Suspect]
  2. METFORMIN HCL [Suspect]
     Indication: TYPE 2 DIABETES MELLITUS
  3. FLUCONAZOLE [Suspect]
  4. SIMVASTATIN [Suspect]
  5. FLUCONAZOLE [Suspect]
     Indication: TYPE 2 DIABETES MELLITUS

REACTIONS (1)
  - RHABDOMYOLYSIS [None]
